FAERS Safety Report 13292420 (Version 3)
Quarter: 2017Q2

REPORT INFORMATION
  Report Type: Report from Study
  Country: KR (occurrence: KR)
  Receive Date: 20170303
  Receipt Date: 20170510
  Transmission Date: 20170830
  Serious: Yes (Hospitalization)
  Sender: FDA-Public Use
  Company Number: KR-CELLTRION INC.-2017KR001981

PATIENT

DRUGS (4)
  1. REMSIMA [Suspect]
     Active Substance: INFLIXIMAB
     Indication: CROHN^S DISEASE
     Dosage: 250 MG, SINGLE
     Route: 042
     Dates: start: 20140422, end: 20140422
  2. REMSIMA [Suspect]
     Active Substance: INFLIXIMAB
     Dosage: 500 MG, SINGLE
     Route: 042
     Dates: start: 20170126, end: 20170126
  3. PHENIRAMINE [Concomitant]
     Active Substance: PHENIRAMINE
     Indication: CROHN^S DISEASE
     Dosage: 4 MG, DAILY
     Route: 042
     Dates: start: 20160329
  4. MESALAZINE [Concomitant]
     Active Substance: MESALAMINE
     Indication: CROHN^S DISEASE
     Dosage: 1200 MG, BID
     Dates: start: 20130523

REACTIONS (1)
  - Cholelithiasis [Recovered/Resolved]

NARRATIVE: CASE EVENT DATE: 20170102
